FAERS Safety Report 25040205 (Version 2)
Quarter: 2025Q1

REPORT INFORMATION
  Report Type: Spontaneous
  Country: US (occurrence: US)
  Receive Date: 20250305
  Receipt Date: 20250325
  Transmission Date: 20250409
  Serious: No
  Sender: LEO PHARM
  Company Number: US-LEO Pharma-378093

PATIENT
  Sex: Female

DRUGS (1)
  1. ADBRY [Suspect]
     Active Substance: TRALOKINUMAB-LDRM
     Indication: Product used for unknown indication
     Dates: start: 202410, end: 20250111

REACTIONS (7)
  - Ocular discomfort [Unknown]
  - Eye pruritus [Unknown]
  - Blepharitis [Unknown]
  - Lacrimation increased [Unknown]
  - Eye discharge [Unknown]
  - Vision blurred [Unknown]
  - Vision blurred [Unknown]
